FAERS Safety Report 7970368-8 (Version None)
Quarter: 2011Q4

REPORT INFORMATION
  Report Type: 
  Country: None (occurrence: None)
  Receive Date: 20111212
  Receipt Date: 20111201
  Transmission Date: 20120403
  Serious: Yes (Other)
  Sender: FDA-Public Use
  Company Number: CA-SANOFI-AVENTIS-2011SA079568

PATIENT
  Age: 34 Year
  Sex: Male

DRUGS (1)
  1. MULTAQ [Suspect]
     Indication: CARDIAC DISORDER
     Route: 048
     Dates: start: 20111201, end: 20111202

REACTIONS (3)
  - HEADACHE [None]
  - HEART RATE IRREGULAR [None]
  - BLOOD PRESSURE INCREASED [None]
